FAERS Safety Report 5472756-0 (Version None)
Quarter: 2007Q4

REPORT INFORMATION
  Report Type: 
  Country: None (occurrence: None)
  Receive Date: 20071001
  Receipt Date: 20070709
  Transmission Date: 20080405
  Serious: No
  Sender: FDA-Public Use
  Company Number: US-ASTRAZENECA-2006UW21455

PATIENT
  Age: 78 Year
  Sex: Female
  Weight: 56.7 kg

DRUGS (12)
  1. ARIMIDEX [Suspect]
     Indication: BREAST CANCER IN SITU
     Route: 048
     Dates: start: 20061001
  2. CRESTOR [Concomitant]
     Route: 048
  3. CARDIZEM [Concomitant]
  4. DIURETIC [Concomitant]
  5. ALTACE [Concomitant]
  6. LEVOTHYROXINE SODIUM [Concomitant]
  7. REMERON [Concomitant]
  8. ULTRAM [Concomitant]
  9. CIPRO [Concomitant]
  10. ASPIRIN [Concomitant]
  11. ENALAPRIL MALEATE [Concomitant]
  12. HYDROCHLOROTHIAZIDE [Concomitant]

REACTIONS (6)
  - ARTHRALGIA [None]
  - BLOOD PRESSURE FLUCTUATION [None]
  - CONSTIPATION [None]
  - DEPRESSION [None]
  - MYALGIA [None]
  - OEDEMA PERIPHERAL [None]
